FAERS Safety Report 18706877 (Version 1)
Quarter: 2021Q1

REPORT INFORMATION
  Report Type: Spontaneous
  Country: CN (occurrence: CN)
  Receive Date: 20210106
  Receipt Date: 20210106
  Transmission Date: 20210419
  Serious: Yes (Life-Threatening, Hospitalization, Other)
  Sender: FDA-Public Use
  Company Number: CN-009507513-2101CHN000113

PATIENT
  Age: 45 Year
  Sex: Male
  Weight: 75 kg

DRUGS (1)
  1. KEYTRUDA [Suspect]
     Active Substance: PEMBROLIZUMAB
     Indication: LUNG NEOPLASM MALIGNANT
     Dosage: UNK, ONCE
     Route: 042
     Dates: start: 20200110, end: 20200110

REACTIONS (6)
  - Hepatic function abnormal [Recovered/Resolved]
  - Neuromyopathy [Recovered/Resolved]
  - Myocardial necrosis marker increased [Recovered/Resolved]
  - Lung disorder [Unknown]
  - Malignant neoplasm progression [Unknown]
  - Cardiac disorder [Unknown]

NARRATIVE: CASE EVENT DATE: 2020
